FAERS Safety Report 6747668-2 (Version None)
Quarter: 2010Q2

REPORT INFORMATION
  Report Type: 
  Country: None (occurrence: None)
  Receive Date: 20100528
  Receipt Date: 20100518
  Transmission Date: 20101027
  Serious: Yes (Other)
  Sender: FDA-Public Use
  Company Number: JP-ABBOTT-10P-087-0646201-00

PATIENT
  Sex: Female

DRUGS (4)
  1. KLARICID DS [Suspect]
     Indication: NASOPHARYNGITIS
     Route: 048
     Dates: start: 20100125, end: 20100128
  2. ALIMEMAZINE TARTRATE [Suspect]
     Indication: NASOPHARYNGITIS
     Route: 048
     Dates: start: 20100125, end: 20100128
  3. TIPEPIDINE HIBENZATE [Suspect]
     Indication: NASOPHARYNGITIS
     Route: 048
     Dates: start: 20100125, end: 20100128
  4. AMBROXOL HYDROCHLORIDE [Suspect]
     Indication: NASOPHARYNGITIS
     Route: 048
     Dates: start: 20100125, end: 20100128

REACTIONS (3)
  - CONJUNCTIVAL DISORDER [None]
  - DRUG ERUPTION [None]
  - ENANTHEMA [None]
